FAERS Safety Report 4608453-0 (Version None)
Quarter: 2005Q1

REPORT INFORMATION
  Report Type: 
  Country: None (occurrence: None)
  Receive Date: 20050311
  Receipt Date: 20050223
  Transmission Date: 20050727
  Serious: Yes (Death, Other)
  Sender: FDA-Public Use
  Company Number: 2005-DE-00740GD

PATIENT

DRUGS (4)
  1. NEVIRAPINE [Suspect]
     Indication: ACQUIRED IMMUNODEFICIENCY SYNDROME
  2. NEVIRAPINE [Suspect]
     Indication: HIV INFECTION
  3. NRTI (NR) [Suspect]
     Indication: ACQUIRED IMMUNODEFICIENCY SYNDROME
  4. NRTI (NR) [Suspect]
     Indication: HIV INFECTION

REACTIONS (4)
  - ACQUIRED IMMUNODEFICIENCY SYNDROME [None]
  - DRUG INEFFECTIVE [None]
  - OPPORTUNISTIC INFECTION [None]
  - RASH [None]
